FAERS Safety Report 4846271-9 (Version None)
Quarter: 2005Q4

REPORT INFORMATION
  Report Type: 
  Country: None (occurrence: None)
  Receive Date: 20051115
  Receipt Date: 20050831
  Transmission Date: 20060501
  Serious: Yes (Life-Threatening, Hospitalization)
  Sender: FDA-Public Use
  Company Number: 416447

PATIENT
  Sex: Female
  Weight: 60.8 kg

DRUGS (2)
  1. PEGASYS [Suspect]
     Indication: HEPATITIS C
     Dates: start: 20050101, end: 20050713
  2. COPEGUS [Suspect]
     Indication: HEPATITIS C
     Dates: start: 20050101, end: 20050713

REACTIONS (6)
  - FATIGUE [None]
  - HAEMATOCRIT DECREASED [None]
  - HAEMOGLOBIN DECREASED [None]
  - NAUSEA [None]
  - PLATELET COUNT DECREASED [None]
  - WHITE BLOOD CELL COUNT [None]
